FAERS Safety Report 6944479-X (Version None)
Quarter: 2010Q3

REPORT INFORMATION
  Report Type: 
  Country: None (occurrence: None)
  Receive Date: 20100827
  Receipt Date: 20100817
  Transmission Date: 20110219
  Serious: Yes (Other)
  Sender: FDA-Public Use
  Company Number: US-PFIZER INC-2010104522

PATIENT
  Sex: Female

DRUGS (3)
  1. GEODON [Suspect]
     Indication: BIPOLAR DISORDER
     Dosage: 20 MG, 2X/DAY
  2. CYMBALTA [Suspect]
     Dosage: UNK
  3. REMERON [Suspect]
     Dosage: UNK

REACTIONS (4)
  - FATIGUE [None]
  - MUSCLE TIGHTNESS [None]
  - SEDATION [None]
  - SOPOR [None]
